FAERS Safety Report 12425078 (Version 1)
Quarter: 2016Q2

REPORT INFORMATION
  Report Type: Spontaneous
  Country: ES (occurrence: ES)
  Receive Date: 20160601
  Receipt Date: 20160601
  Transmission Date: 20160815
  Serious: Yes (Other)
  Sender: FDA-Public Use
  Company Number: ES-PFIZER INC-2016278792

PATIENT
  Age: 65 Year
  Sex: Female

DRUGS (2)
  1. CEFEPIME HCL [Suspect]
     Active Substance: CEFEPIME HYDROCHLORIDE
     Indication: URINARY TRACT INFECTION
     Dosage: 2 G EVERY 8 H WITH BOLUS ADMINISTRATION (6 G, DAILY)
  2. CIPROFLOXACIN. [Concomitant]
     Active Substance: CIPROFLOXACIN
     Dosage: 400 MG, DAILY (INITIATED 4 DAYS BEFORE SURGERY)

REACTIONS (2)
  - Status epilepticus [Recovered/Resolved]
  - Neurotoxicity [Recovered/Resolved]
